FAERS Safety Report 4602395-2 (Version None)
Quarter: 2005Q1

REPORT INFORMATION
  Report Type: 
  Country: None (occurrence: None)
  Receive Date: 20050307
  Receipt Date: 20050218
  Transmission Date: 20050727
  Serious: Yes (Other)
  Sender: FDA-Public Use
  Company Number: 2004109234

PATIENT
  Sex: Female
  Weight: 57.1532 kg

DRUGS (13)
  1. ZYRTEC-2 12 HOUR (PSEUDOEPHEDRINE, CETIRIZINE) [Suspect]
     Indication: RHINITIS ALLERGIC
     Dosage: ONE DAILY, ORAL
     Route: 048
     Dates: start: 20040101, end: 20041001
  2. SALBUTAMOL (SALBUTAMOL) [Concomitant]
  3. TRIAMCINOLONE ACETONIDE [Concomitant]
  4. SUMATRIPTAN SUCCINATE [Concomitant]
  5. GABAPENTIN [Concomitant]
  6. ASCORBIC ACID [Concomitant]
  7. OMEPRAZOLE [Concomitant]
  8. MULTIVITAMINS (ASCORBIC ACID, ERGOCALCIFEROL, FOLIC ACID, NICOTINAMIDE [Concomitant]
  9. VICODIN [Concomitant]
  10. CYCLOBENZAPRINE HYDROCHLORIDE [Concomitant]
  11. BUSPIRONE HCL [Concomitant]
  12. ESCITALOPRAM (ESCITALOPRAM) [Concomitant]
  13. NICOTINIC ACID [Concomitant]

REACTIONS (6)
  - AMPHETAMINES POSITIVE [None]
  - DRUG ABUSER [None]
  - FALSE POSITIVE LABORATORY RESULT [None]
  - INTERVERTEBRAL DISC PROTRUSION [None]
  - MEDICAL DEVICE COMPLICATION [None]
  - PAIN [None]
